FAERS Safety Report 11933941 (Version 1)
Quarter: 2016Q1

REPORT INFORMATION
  Report Type: Spontaneous
  Country: US (occurrence: US)
  Receive Date: 20160121
  Receipt Date: 20160121
  Transmission Date: 20160526
  Serious: Yes (Hospitalization)
  Sender: FDA-Public Use
  Company Number: US-JNJFOC-20160106856

PATIENT
  Age: 24 Month
  Sex: Male

DRUGS (1)
  1. BENGAY ULTRA STRENGTH TUBE [Suspect]
     Active Substance: MENTHOL\METHYL SALICYLATE
     Indication: ACCIDENTAL EXPOSURE TO PRODUCT
     Dosage: ONCE
     Route: 048

REACTIONS (2)
  - Accidental exposure to product [Unknown]
  - Expired product administered [Unknown]
